FAERS Safety Report 17984065 (Version 1)
Quarter: 2020Q3

REPORT INFORMATION
  Report Type: Spontaneous
  Country: FR (occurrence: FR)
  Receive Date: 20200706
  Receipt Date: 20200706
  Transmission Date: 20201103
  Serious: Yes (Hospitalization, Other)
  Sender: FDA-Public Use
  Company Number: FR-PFIZER INC-2020254930

PATIENT
  Age: 32 Year
  Sex: Male

DRUGS (3)
  1. PREGABALIN. [Suspect]
     Active Substance: PREGABALIN
     Dosage: UNK (QUANITY CONSUMED NOT PRECISE)
     Dates: start: 20200216
  2. HEROIN [Suspect]
     Active Substance: DIAMORPHINE
     Indication: DRUG DEPENDENCE
     Dosage: UNK (QUANTITY CONSUMED NOT PRECISE)
     Dates: start: 20200216
  3. ALCOOL [Suspect]
     Active Substance: ALCOHOL
     Dosage: UNK (QUANTITY CONSUMED NOT PRECISE)
     Route: 048

REACTIONS (4)
  - Oxygen saturation decreased [Recovered/Resolved]
  - Coma [Recovered/Resolved]
  - Bradypnoea [Recovered/Resolved]
  - Drug abuse [Unknown]

NARRATIVE: CASE EVENT DATE: 20200216
